FAERS Safety Report 18429367 (Version 1)
Quarter: 2020Q4

REPORT INFORMATION
  Report Type: Spontaneous
  Country: JP (occurrence: JP)
  Receive Date: 20201026
  Receipt Date: 20201026
  Transmission Date: 20210114
  Serious: Yes (Other)
  Sender: FDA-Public Use
  Company Number: JP-009507513-2010JPN008984

PATIENT
  Age: 79 Year
  Sex: Female

DRUGS (1)
  1. PEMBROLIZUMAB. [Suspect]
     Active Substance: PEMBROLIZUMAB
     Indication: MALIGNANT MELANOMA
     Dosage: 200 MILLIGRAM, Q3W

REACTIONS (2)
  - Cardiomyopathy [Recovering/Resolving]
  - Vasculitis [Recovering/Resolving]
